FAERS Safety Report 25061260 (Version 1)
Quarter: 2025Q1

REPORT INFORMATION
  Report Type: Spontaneous
  Country: US (occurrence: US)
  Receive Date: 20250311
  Receipt Date: 20250311
  Transmission Date: 20250408
  Serious: Yes (Other)
  Sender: BRISTOL-MYERS SQUIBB COMPANY
  Company Number: US-BRISTOL-MYERS SQUIBB COMPANY-2025-035658

PATIENT
  Age: 68 Year
  Sex: Female

DRUGS (10)
  1. POMALYST [Suspect]
     Active Substance: POMALIDOMIDE
     Indication: Plasma cell myeloma
     Dosage: FREQUENCY: TAKE 1 CAPSULE (3 MG) BY MOUTH DAILY ON DAYS 1-21 OF EACH 28-DAY CYCLE. TAKE WHOLE WITH W
     Route: 048
     Dates: start: 20250207
  2. ACYCLOVIR [Concomitant]
     Active Substance: ACYCLOVIR
     Indication: Product used for unknown indication
  3. AIRBORNE [Concomitant]
     Active Substance: HERBALS\MINERALS\VITAMINS
     Indication: Product used for unknown indication
  4. ASPIRIN [Concomitant]
     Active Substance: ASPIRIN
     Indication: Product used for unknown indication
  5. CALCIUM [Concomitant]
     Active Substance: CALCIUM
     Indication: Product used for unknown indication
  6. LEVOTHYROXINE [Concomitant]
     Active Substance: LEVOTHYROXINE
     Indication: Product used for unknown indication
  7. ONE DAILY [ASCORBIC ACID;CYANOCOBALAMIN;ERGOCALCIFEROL;FOLIC ACID;NICO [Concomitant]
     Indication: Product used for unknown indication
  8. VITAMIN B12 [Concomitant]
     Active Substance: CYANOCOBALAMIN
     Indication: Product used for unknown indication
  9. VITAMIN C [Concomitant]
     Active Substance: ASCORBIC ACID
     Indication: Product used for unknown indication
  10. VITAMIN D3 [Concomitant]
     Active Substance: CHOLECALCIFEROL
     Indication: Product used for unknown indication

REACTIONS (2)
  - Plasma cell myeloma [Unknown]
  - Drug ineffective [Unknown]
